FAERS Safety Report 22047959 (Version 1)
Quarter: 2023Q1

REPORT INFORMATION
  Report Type: Report from Study
  Country: BR (occurrence: BR)
  Receive Date: 20230301
  Receipt Date: 20230301
  Transmission Date: 20230417
  Serious: Yes (Disabling)
  Sender: FDA-Public Use
  Company Number: BR-ABBVIE-4320089

PATIENT
  Age: 48 Year
  Sex: Female
  Weight: 155 kg

DRUGS (1)
  1. RINVOQ [Suspect]
     Active Substance: UPADACITINIB
     Indication: Rheumatoid arthritis
     Dosage: 1 TABLET
     Route: 048
     Dates: start: 20211209

REACTIONS (6)
  - Immobile [Unknown]
  - Feeling abnormal [Unknown]
  - Malaise [Unknown]
  - General physical health deterioration [Unknown]
  - Impaired work ability [Unknown]
  - Arthralgia [Unknown]

NARRATIVE: CASE EVENT DATE: 20230201
